FAERS Safety Report 5503970-3 (Version None)
Quarter: 2007Q4

REPORT INFORMATION
  Report Type: 
  Country: None (occurrence: None)
  Receive Date: 20071030
  Receipt Date: 20071030
  Transmission Date: 20080405
  Serious: No
  Sender: FDA-Public Use
  Company Number: None

PATIENT
  Age: 54 Year
  Sex: Male

DRUGS (2)
  1. LINEZOLID [Suspect]
     Indication: SEPSIS
     Dosage: 600MG  BID  IV
     Route: 042
     Dates: start: 20070609, end: 20070616
  2. HEPARIN/SODIUM CHLORIDE [Suspect]
     Indication: THROMBOSIS PROPHYLAXIS
     Dosage: UNITS  SLIDING SCALE  IV
     Route: 042
     Dates: start: 20070606, end: 20070918

REACTIONS (1)
  - THROMBOCYTOPENIA [None]
